FAERS Safety Report 6125095-9 (Version None)
Quarter: 2009Q1

REPORT INFORMATION
  Report Type: 
  Country: None (occurrence: None)
  Receive Date: 20090318
  Receipt Date: 20090306
  Transmission Date: 20090719
  Serious: Yes (Hospitalization, Other)
  Sender: FDA-Public Use
  Company Number: CLOF-1000458

PATIENT
  Age: 12 Year
  Sex: Female
  Weight: 69.9 kg

DRUGS (5)
  1. CLOLAR [Suspect]
     Indication: ACUTE LYMPHOCYTIC LEUKAEMIA
     Dosage: 52 MG/M2, INTRAVENOUS
     Dates: start: 20090213, end: 20090217
  2. CLOLAR [Suspect]
     Indication: ACUTE LYMPHOCYTIC LEUKAEMIA
     Dosage: 52 MG/M2, INTRAVENOUS
     Dates: start: 20090123
  3. CYTARABINE [Suspect]
     Indication: ACUTE LYMPHOCYTIC LEUKAEMIA
     Dosage: INTRAVENOUS
     Route: 042
     Dates: start: 20090213, end: 20090217
  4. CYTARABINE [Suspect]
     Indication: ACUTE LYMPHOCYTIC LEUKAEMIA
     Dosage: INTRAVENOUS
     Route: 042
     Dates: start: 20090123
  5. METHOTREXATE [Suspect]
     Indication: ACUTE LYMPHOCYTIC LEUKAEMIA
     Dosage: 12 MG, ONCE
     Dates: start: 20090213, end: 20090213

REACTIONS (9)
  - BLOOD AMYLASE INCREASED [None]
  - BLOOD CREATININE INCREASED [None]
  - HYPOTENSION [None]
  - KLEBSIELLA BACTERAEMIA [None]
  - LIPASE [None]
  - LIPASE INCREASED [None]
  - PROTEINURIA [None]
  - STAPHYLOCOCCAL INFECTION [None]
  - ULTRASOUND KIDNEY ABNORMAL [None]
